FAERS Safety Report 7183860-3 (Version None)
Quarter: 2010Q4

REPORT INFORMATION
  Report Type: 
  Country: None (occurrence: None)
  Receive Date: 20101222
  Receipt Date: 20101214
  Transmission Date: 20110411
  Serious: Yes (Hospitalization)
  Sender: FDA-Public Use
  Company Number: US-JNJFOC-20101205742

PATIENT
  Sex: Female
  Weight: 81.65 kg

DRUGS (27)
  1. SIMPONI [Suspect]
     Indication: PSORIASIS
     Route: 058
  2. SIMPONI [Suspect]
     Indication: PSORIATIC ARTHROPATHY
     Route: 058
  3. HYDROCODONE BITARTRATE [Concomitant]
     Indication: COUGH
     Route: 048
  4. MULTIVITS [Concomitant]
     Indication: VITAMIN SUPPLEMENTATION
     Route: 048
  5. FISH OIL [Concomitant]
     Indication: FATTY ACID DEFICIENCY
     Route: 048
  6. ALBUTEROL [Concomitant]
     Indication: ASTHMA
     Route: 055
  7. FLOVENT [Concomitant]
     Indication: ASTHMA
     Route: 048
  8. VENTOLIN [Concomitant]
     Indication: ASTHMA
     Route: 048
  9. ONDANSETRON [Concomitant]
     Indication: NAUSEA
     Route: 048
  10. PANTOPRAZOLE [Concomitant]
     Indication: GASTROOESOPHAGEAL REFLUX DISEASE
     Route: 048
  11. VITAMIN D [Concomitant]
     Indication: VITAMIN D
     Route: 048
  12. STOOL SOFTENER [Concomitant]
     Indication: ABNORMAL FAECES
     Route: 048
  13. CALCIUM WITH VITAMIN D [Concomitant]
     Indication: VITAMIN D
     Route: 048
  14. CALCIUM WITH VITAMIN D [Concomitant]
     Indication: BLOOD CALCIUM
     Route: 048
  15. VITAMIN B6 [Concomitant]
     Indication: VITAMIN B6
     Route: 048
  16. VITAMIN B-12 [Concomitant]
     Indication: VITAMIN B12
     Route: 048
  17. ASCORBIC ACID [Concomitant]
     Indication: VITAMIN C
     Route: 048
  18. RESTASIS [Concomitant]
     Indication: DRY EYE
     Route: 047
  19. FLONASE [Concomitant]
     Indication: MULTIPLE ALLERGIES
     Route: 045
  20. LIDODERM [Concomitant]
     Indication: PAIN
     Route: 062
  21. MIRALAX [Concomitant]
     Indication: FREQUENT BOWEL MOVEMENTS
     Route: 048
  22. TOPAMAX [Concomitant]
     Indication: MIGRAINE
     Route: 048
  23. TOPAMAX [Concomitant]
     Route: 048
  24. DICYCLOMINE [Concomitant]
     Indication: IRRITABLE BOWEL SYNDROME
     Route: 048
  25. METHADONE [Concomitant]
     Indication: PAIN
     Route: 048
  26. METHADONE [Concomitant]
     Route: 048
  27. IMITREX [Concomitant]
     Indication: MIGRAINE
     Route: 048

REACTIONS (4)
  - DRUG DOSE OMISSION [None]
  - HYPERTENSION [None]
  - MIGRAINE [None]
  - OVERDOSE [None]
